FAERS Safety Report 19480521 (Version 1)
Quarter: 2021Q2

REPORT INFORMATION
  Report Type: Spontaneous
  Country: US (occurrence: US)
  Receive Date: 20210630
  Receipt Date: 20210630
  Transmission Date: 20210717
  Serious: No
  Sender: FDA-Public Use
  Company Number: US-FOUNDATIONCONSUMERHC-2021-US-006391

PATIENT
  Age: 24 Year
  Sex: Female
  Weight: 61.69 kg

DRUGS (7)
  1. AFTERA [Suspect]
     Active Substance: LEVONORGESTREL
     Indication: POST COITAL CONTRACEPTION
     Dosage: 1.5MG X 1 DOSE
     Route: 048
     Dates: start: 20210316, end: 20210316
  2. OMEGA [Concomitant]
  3. WHOLE FOOD VITAMINS [Concomitant]
  4. SEAMOSS [Concomitant]
  5. ASHWAGANDHA + MAGNESIUM [Concomitant]
  6. TURMERIC + GINGER [Concomitant]
  7. COLLAGEN [Concomitant]
     Active Substance: COLLAGEN

REACTIONS (6)
  - Vaginal haemorrhage [Not Recovered/Not Resolved]
  - Dizziness [Not Recovered/Not Resolved]
  - Back pain [Not Recovered/Not Resolved]
  - Vaginal haemorrhage [Recovered/Resolved]
  - Dysmenorrhoea [Not Recovered/Not Resolved]
  - Nausea [Not Recovered/Not Resolved]

NARRATIVE: CASE EVENT DATE: 20210323
